FAERS Safety Report 9682636 (Version 2)
Quarter: 2013Q4

REPORT INFORMATION
  Report Type: Spontaneous
  Country: FR (occurrence: FR)
  Receive Date: 20131112
  Receipt Date: 20131205
  Transmission Date: 20140711
  Serious: No
  Sender: FDA-Public Use
  Company Number: FR-UCBSA-102541

PATIENT
  Age: 81 Year
  Sex: Male
  Weight: 75 kg

DRUGS (5)
  1. NEUPRO [Suspect]
     Indication: RESTLESS LEGS SYNDROME
     Dosage: DAILY DOSE: 2 MG
     Route: 062
     Dates: start: 20130924
  2. BISOPROLOL [Concomitant]
     Route: 048
  3. IXPRIM [Concomitant]
  4. KARDEGIC [Concomitant]
     Dosage: 75MG
     Route: 048
  5. CRESTOR [Concomitant]
     Dosage: 5MG
     Route: 048

REACTIONS (1)
  - Tachycardia [Recovered/Resolved]
